FAERS Safety Report 9201934 (Version 3)
Quarter: 2013Q4

REPORT INFORMATION
  Report Type: Report from Study
  Country: BR (occurrence: BR)
  Receive Date: 20130401
  Receipt Date: 20131023
  Transmission Date: 20140711
  Serious: Yes (Hospitalization, Other)
  Sender: FDA-Public Use
  Company Number: BR-ROCHE-1208442

PATIENT
  Sex: Female

DRUGS (4)
  1. XOLAIR [Suspect]
     Indication: ASTHMA
     Dosage: 2 AMPOULES
     Route: 065
     Dates: start: 20111120
  2. PREDNISONE [Concomitant]
     Route: 065
  3. DIOSMIN [Concomitant]
  4. OMEPRAZOLE [Concomitant]

REACTIONS (8)
  - Asthma [Recovering/Resolving]
  - Blood potassium decreased [Recovering/Resolving]
  - Mental disorder [Unknown]
  - Pharyngeal disorder [Unknown]
  - Swelling [Unknown]
  - Fatigue [Not Recovered/Not Resolved]
  - Varicose vein [Not Recovered/Not Resolved]
  - Thrombophlebitis [Not Recovered/Not Resolved]
